FAERS Safety Report 18888084 (Version 2)
Quarter: 2021Q2

REPORT INFORMATION
  Report Type: Spontaneous
  Country: US (occurrence: US)
  Receive Date: 20210212
  Receipt Date: 20210517
  Transmission Date: 20210717
  Serious: Yes (Other)
  Sender: FDA-Public Use
  Company Number: US-GLAXOSMITHKLINE-US2021GSK039954

PATIENT
  Sex: Female

DRUGS (12)
  1. RANITIDINE. [Suspect]
     Active Substance: RANITIDINE
     Dosage: 150 MG, QD
     Route: 065
     Dates: start: 199701, end: 201901
  2. RANITIDINE. [Suspect]
     Active Substance: RANITIDINE
     Indication: THROAT IRRITATION
     Dosage: 75 MG PRESCRIPTION
     Route: 065
     Dates: start: 199701, end: 201901
  3. RANITIDINE. [Suspect]
     Active Substance: RANITIDINE
     Dosage: 75 MG PRESCRIPTION
     Route: 065
     Dates: start: 199701, end: 201901
  4. RANITIDINE. [Suspect]
     Active Substance: RANITIDINE
     Dosage: 150 MG, QD
     Route: 065
     Dates: start: 199701, end: 201901
  5. ZANTAC [Suspect]
     Active Substance: RANITIDINE HYDROCHLORIDE
     Dosage: UNK
  6. ZANTAC [Suspect]
     Active Substance: RANITIDINE HYDROCHLORIDE
     Dosage: 75 MG OVER THE COUNTER
     Route: 065
     Dates: start: 199501, end: 201901
  7. ZANTAC [Suspect]
     Active Substance: RANITIDINE HYDROCHLORIDE
     Indication: THROAT IRRITATION
     Dosage: 75 MG OVER THE COUNTER
     Route: 065
     Dates: start: 199501, end: 201901
  8. RANITIDINE. [Suspect]
     Active Substance: RANITIDINE
     Indication: THROAT IRRITATION
     Dosage: 75 MG PRESCRIPTION
     Route: 065
     Dates: start: 199701, end: 201901
  9. ZANTAC [Suspect]
     Active Substance: RANITIDINE HYDROCHLORIDE
     Indication: THROAT IRRITATION
     Dosage: 75 MG OVER THE COUNTER
     Route: 065
     Dates: start: 199501, end: 201901
  10. ZANTAC [Suspect]
     Active Substance: RANITIDINE HYDROCHLORIDE
     Dosage: 150 MG, QD
     Route: 065
     Dates: start: 199501, end: 201901
  11. ZANTAC [Suspect]
     Active Substance: RANITIDINE HYDROCHLORIDE
     Dosage: 150 MG, QD
     Route: 065
     Dates: start: 199501, end: 201901
  12. RANITIDINE. [Suspect]
     Active Substance: RANITIDINE
     Dosage: 75 MG PRESCRIPTION
     Route: 065
     Dates: start: 199701, end: 201901

REACTIONS (1)
  - Renal cancer [Unknown]
